FAERS Safety Report 7260818-7 (Version None)
Quarter: 2011Q1

REPORT INFORMATION
  Report Type: 
  Country: None (occurrence: None)
  Receive Date: 20110130
  Receipt Date: 20101129
  Transmission Date: 20110831
  Serious: No
  Sender: FDA-Public Use
  Company Number: US-ABBOTT-10P-163-0684956-00

PATIENT
  Sex: Female
  Weight: 53.118 kg

DRUGS (2)
  1. HUMIRA [Suspect]
     Indication: CROHN'S DISEASE
     Dates: start: 20080101
  2. IBUPROFEN [Concomitant]
     Indication: PAIN

REACTIONS (3)
  - DEVICE MALFUNCTION [None]
  - DIARRHOEA [None]
  - ABDOMINAL PAIN [None]
